FAERS Safety Report 7757902-8 (Version None)
Quarter: 2011Q3

REPORT INFORMATION
  Report Type: 
  Country: None (occurrence: None)
  Receive Date: 20110918
  Receipt Date: 20110522
  Transmission Date: 20111222
  Serious: Yes (Other)
  Sender: FDA-Public Use
  Company Number: PHHY2011IL44739

PATIENT
  Sex: Male

DRUGS (5)
  1. EXELON [Suspect]
     Dosage: 1.5 MG, BID
  2. EXELON [Suspect]
     Indication: DEMENTIA
     Dosage: 6 MG, UNK
     Route: 048
     Dates: start: 20110519
  3. EXELON [Suspect]
     Dosage: 3 MG, BID
     Route: 048
     Dates: start: 20110522
  4. EXELON [Suspect]
     Indication: DEMENTIA
     Dosage: 9.5 MG
     Route: 062
     Dates: end: 20110519
  5. EXELON [Suspect]
     Dosage: 1.5 MG, BID
     Route: 048
     Dates: start: 20110522

REACTIONS (6)
  - PRESYNCOPE [None]
  - DISORIENTATION [None]
  - OVERDOSE [None]
  - CONFUSIONAL STATE [None]
  - DIZZINESS [None]
  - FEAR [None]
